FAERS Safety Report 24206753 (Version 2)
Quarter: 2024Q4

REPORT INFORMATION
  Report Type: Spontaneous
  Country: JP (occurrence: JP)
  Receive Date: 20240813
  Receipt Date: 20241211
  Transmission Date: 20250114
  Serious: Yes (Life-Threatening, Other)
  Sender: JAZZ
  Company Number: JP-JAZZ PHARMACEUTICALS-2024-JP-009310

PATIENT
  Age: 50 Year
  Sex: Male
  Weight: 61 kg

DRUGS (2)
  1. VYXEOS [Suspect]
     Active Substance: CYTARABINE\DAUNORUBICIN
     Indication: Acute myeloid leukaemia
     Dosage: 170 UNITS,  3 PER DAY (510 IU)
     Route: 042
     Dates: start: 20240524, end: 20240528
  2. CEFEPIME HYDROCHLORIDE [Concomitant]
     Active Substance: CEFEPIME HYDROCHLORIDE
     Indication: Sepsis
     Dosage: 4 GRAM
     Dates: start: 20240521, end: 20240604

REACTIONS (2)
  - Sepsis [Recovered/Resolved]
  - Remission not achieved [Unknown]

NARRATIVE: CASE EVENT DATE: 20240101
